FAERS Safety Report 6306408-1 (Version None)
Quarter: 2009Q3

REPORT INFORMATION
  Report Type: 
  Country: None (occurrence: None)
  Receive Date: 20090812
  Receipt Date: 20090804
  Transmission Date: 20100115
  Serious: Yes (Other)
  Sender: FDA-Public Use
  Company Number: US-ASTRAZENECA-2009UW12248

PATIENT
  Age: 71 Year
  Sex: Female
  Weight: 76.2 kg

DRUGS (13)
  1. SYMBICORT [Suspect]
     Indication: PULMONARY FIBROSIS
     Dosage: 80/4.5 MG 2 PUFFS
     Route: 055
     Dates: start: 20090401
  2. SPIRIVA [Concomitant]
  3. COMBIVENT [Concomitant]
  4. ALBUTEROL [Concomitant]
     Dosage: O.5-3 MG/3 ML
     Route: 055
  5. DIOVAN [Concomitant]
  6. CLONIDINE [Concomitant]
     Route: 048
  7. ARIMIDEX [Concomitant]
     Route: 048
  8. LOVONEX [Concomitant]
  9. HYDROCHLOROTHIAZIDE [Concomitant]
     Route: 048
     Dates: start: 20090114
  10. ALPRAZOLAM [Concomitant]
     Dates: start: 20090112
  11. POTASSIUM CHLORIDE [Concomitant]
     Route: 048
     Dates: start: 20090113
  12. SULFAMETHOXAZOLE [Concomitant]
     Route: 048
     Dates: start: 20090204
  13. AZITHROMYCIN [Concomitant]
     Dosage: AS DIRECTEC
     Route: 048
     Dates: start: 20090131

REACTIONS (5)
  - CHEST DISCOMFORT [None]
  - COUGH [None]
  - DRUG INEFFECTIVE [None]
  - DYSPNOEA [None]
  - OXYGEN SATURATION ABNORMAL [None]
